FAERS Safety Report 13040787 (Version 3)
Quarter: 2017Q1

REPORT INFORMATION
  Report Type: Report from Study
  Country: AU (occurrence: AU)
  Receive Date: 20161219
  Receipt Date: 20170110
  Transmission Date: 20170428
  Serious: No
  Sender: FDA-Public Use
  Company Number: AU-JNJFOC-20161026185

PATIENT
  Age: 73 Year
  Sex: Female

DRUGS (1)
  1. STELARA [Suspect]
     Active Substance: USTEKINUMAB
     Indication: PSORIASIS
     Route: 058
     Dates: start: 20160711

REACTIONS (6)
  - Nasopharyngitis [Unknown]
  - Influenza like illness [Recovering/Resolving]
  - Psoriasis [Unknown]
  - Bone pain [Unknown]
  - Throat irritation [Unknown]
  - Underdose [Unknown]

NARRATIVE: CASE EVENT DATE: 20161221
